FAERS Safety Report 5571507-9 (Version None)
Quarter: 2007Q4

REPORT INFORMATION
  Report Type: 
  Country: None (occurrence: None)
  Receive Date: 20071221
  Receipt Date: 20071210
  Transmission Date: 20080405
  Serious: Yes (Hospitalization)
  Sender: FDA-Public Use
  Company Number: GB-ROCHE-536281

PATIENT
  Age: 59 Year
  Sex: Female
  Weight: 111.6 kg

DRUGS (5)
  1. ORLISTAT [Suspect]
     Indication: OBESITY
     Route: 048
     Dates: start: 20070609
  2. FUROSEMIDE [Concomitant]
     Indication: HYPERTENSION
     Dosage: DOSAGE: ONE DAILY
     Route: 048
  3. OMEPRAZOLE [Concomitant]
     Dosage: DOSAGE: ONE DAILY
     Route: 048
  4. 1 CONCOMITANT DRUG [Concomitant]
     Indication: ASTHMA
     Dosage: DRUG: 3 ASTHMA INHALER
     Route: 055
  5. PERINDOPRIL [Concomitant]
     Indication: HYPERTENSION
     Dosage: DRUG NAME: PERINDOPIRIL, DOSAGE: ONE DAILY
     Route: 048

REACTIONS (1)
  - PNEUMONIA [None]
